FAERS Safety Report 5004641-2 (Version None)
Quarter: 2006Q2

REPORT INFORMATION
  Report Type: 
  Country: None (occurrence: None)
  Receive Date: 20060512
  Receipt Date: 20060503
  Transmission Date: 20061013
  Serious: Yes (Other)
  Sender: FDA-Public Use
  Company Number: 2006059872

PATIENT
  Age: 25 Year
  Sex: Female

DRUGS (3)
  1. PHENYTOIN [Suspect]
     Indication: INTRACRANIAL INJURY
     Dosage: 100 MG (1 D),
     Dates: start: 19890307, end: 19890312
  2. CARBAMAZEPINE [Suspect]
     Indication: INTRACRANIAL INJURY
     Dosage: 400 MG (1 D),
     Dates: start: 19890307, end: 19890313
  3. BACTRIM [Concomitant]
     Indication: ILL-DEFINED DISORDER
     Dosage: 2 DOSES (1 D),
     Dates: start: 19890306, end: 19890313

REACTIONS (5)
  - HEPATIC FUNCTION ABNORMAL [None]
  - LYMPHADENOPATHY [None]
  - PYREXIA [None]
  - RASH [None]
  - TACHYCARDIA [None]
